FAERS Safety Report 12974882 (Version 1)
Quarter: 2016Q4

REPORT INFORMATION
  Report Type: Report from Study
  Country: NL (occurrence: NL)
  Receive Date: 20161125
  Receipt Date: 20161125
  Transmission Date: 20170207
  Serious: Yes (Hospitalization)
  Sender: FDA-Public Use
  Company Number: NL-ASTRAZENECA-2016SF23000

PATIENT
  Age: 21383 Day
  Sex: Female

DRUGS (6)
  1. SPIRONOLACTONE. [Concomitant]
     Active Substance: SPIRONOLACTONE
     Dosage: 25 MG
     Dates: start: 20161104
  2. OLAPARIB [Suspect]
     Active Substance: OLAPARIB
     Indication: NON-SMALL CELL LUNG CANCER
     Route: 048
     Dates: start: 20160709, end: 20160813
  3. RADIOTHERAPY [Suspect]
     Active Substance: RADIATION THERAPY
     Indication: NON-SMALL CELL LUNG CANCER
     Dosage: 666 Y (24X275(6Y))
     Route: 065
     Dates: start: 20160711, end: 20160811
  4. FUROSEMIDE. [Concomitant]
     Active Substance: FUROSEMIDE
     Dosage: 40 M
     Dates: start: 20161104
  5. BUDESONIDE/ FORMOTEROL [Concomitant]
     Dosage: 320 MG
     Dates: start: 20161013
  6. CODEINE [Concomitant]
     Active Substance: CODEINE
     Dosage: 40 MG
     Dates: start: 20160928

REACTIONS (2)
  - Pericardial effusion [Not Recovered/Not Resolved]
  - Pericarditis [Not Recovered/Not Resolved]

NARRATIVE: CASE EVENT DATE: 20161116
